FAERS Safety Report 18989602 (Version 1)
Quarter: 2021Q1

REPORT INFORMATION
  Report Type: Other
  Country: CA (occurrence: CA)
  Receive Date: 20210309
  Receipt Date: 20210309
  Transmission Date: 20210420
  Serious: Yes (Other)
  Sender: FDA-Public Use
  Company Number: CA-INTERCEPT-PM2021000605

PATIENT
  Age: 70 Year
  Sex: Female

DRUGS (2)
  1. URSO [Concomitant]
     Active Substance: URSODIOL
     Dosage: 1000 MILLIGRAM, QD
  2. OCALIVA [Suspect]
     Active Substance: OBETICHOLIC ACID
     Indication: PRIMARY BILIARY CHOLANGITIS
     Dosage: 5 MILLIGRAM, QD
     Route: 048
     Dates: start: 20191107

REACTIONS (1)
  - Lung neoplasm malignant [Not Recovered/Not Resolved]

NARRATIVE: CASE EVENT DATE: 20210225
